FAERS Safety Report 8145184-7 (Version None)
Quarter: 2012Q1

REPORT INFORMATION
  Report Type: 
  Country: None (occurrence: None)
  Receive Date: 20120214
  Receipt Date: 20120130
  Transmission Date: 20120608
  Serious: Yes (Disabling)
  Sender: FDA-Public Use
  Company Number: 2012P1000449

PATIENT
  Age: 86 Year
  Sex: Female
  Weight: 63.5036 kg

DRUGS (6)
  1. ATENOLOL [Suspect]
     Indication: HYPERTENSION
     Dosage: 50 MG;QAM;PO, 25 MG;QPM;PO, 25 MG;QD;PO
     Route: 048
     Dates: end: 20120104
  2. ATENOLOL [Suspect]
     Indication: HYPERTENSION
     Dosage: 50 MG;QAM;PO, 25 MG;QPM;PO, 25 MG;QD;PO
     Route: 048
     Dates: end: 20120104
  3. ATENOLOL [Suspect]
     Indication: HYPERTENSION
     Dosage: 50 MG;QAM;PO, 25 MG;QPM;PO, 25 MG;QD;PO
     Route: 048
     Dates: start: 20120105
  4. GLIPIZIDE [Concomitant]
  5. ATENOLOL [Suspect]
     Indication: HYPERTENSION
  6. MODURETIC (AMILORIDE AND HYDROCHLOROTHIAZIDE) [Concomitant]

REACTIONS (6)
  - VOMITING [None]
  - DIARRHOEA [None]
  - NAUSEA [None]
  - ARTHROPATHY [None]
  - PRODUCT ODOUR ABNORMAL [None]
  - WALKING AID USER [None]
